FAERS Safety Report 23650859 (Version 2)
Quarter: 2024Q2

REPORT INFORMATION
  Report Type: Spontaneous
  Country: US (occurrence: US)
  Receive Date: 20240320
  Receipt Date: 20240405
  Transmission Date: 20240715
  Serious: No
  Sender: FDA-Public Use
  Company Number: US-ViiV Healthcare Limited-108962

PATIENT
  Age: 55 Year
  Sex: Male
  Weight: 81.6 kg

DRUGS (1)
  1. RUKOBIA [Suspect]
     Active Substance: FOSTEMSAVIR TROMETHAMINE
     Indication: Drug resistance
     Dosage: UNK
     Dates: start: 20240214

REACTIONS (1)
  - Product residue present [Recovered/Resolved]

NARRATIVE: CASE EVENT DATE: 20240312
